FAERS Safety Report 8606133-8 (Version None)
Quarter: 2012Q3

REPORT INFORMATION
  Report Type: 
  Country: None (occurrence: None)
  Receive Date: 20120809
  Receipt Date: 20120809
  Transmission Date: 20120928
  Serious: Yes (Other)
  Sender: FDA-Public Use
  Company Number: None

PATIENT
  Sex: Male
  Weight: 92.9874 kg

DRUGS (3)
  1. VENLAFAXINE [Suspect]
     Indication: MAJOR DEPRESSION
     Dosage: 150MG 1 QD PO
     Route: 048
     Dates: start: 20111101, end: 20120101
  2. VYVANSE [Concomitant]
  3. VENLAFAXINE [Suspect]
     Indication: MAJOR DEPRESSION
     Dosage: 75 MG 1 QD PO
     Route: 048
     Dates: start: 20111101, end: 20120101

REACTIONS (3)
  - PRODUCT SUBSTITUTION ISSUE [None]
  - DEPRESSION [None]
  - CONDITION AGGRAVATED [None]
